FAERS Safety Report 5223771-3 (Version None)
Quarter: 2007Q1

REPORT INFORMATION
  Report Type: 
  Country: None (occurrence: None)
  Receive Date: 20070130
  Receipt Date: 20070122
  Transmission Date: 20070707
  Serious: Yes (Death)
  Sender: FDA-Public Use
  Company Number: US-AVENTIS-200710680GDDC

PATIENT
  Age: 66 Year
  Sex: Male
  Weight: 58.06 kg

DRUGS (2)
  1. TAXOTERE [Suspect]
     Route: 042
     Dates: start: 20061208, end: 20061208
  2. OXALIPLATIN [Suspect]
     Route: 042
     Dates: start: 20061208, end: 20061208

REACTIONS (5)
  - ASTHENIA [None]
  - HAEMATEMESIS [None]
  - ILL-DEFINED DISORDER [None]
  - MULTI-ORGAN FAILURE [None]
  - NAUSEA [None]
